FAERS Safety Report 4929213-7 (Version None)
Quarter: 2006Q1

REPORT INFORMATION
  Report Type: 
  Country: None (occurrence: None)
  Receive Date: 20060301
  Receipt Date: 20060210
  Transmission Date: 20060701
  Serious: Yes (Hospitalization, Disabling)
  Sender: FDA-Public Use
  Company Number: US-MERCK-0602USA03494

PATIENT
  Age: 55 Year
  Sex: Male
  Weight: 95 kg

DRUGS (22)
  1. VIOXX [Suspect]
     Indication: BACK PAIN
     Route: 048
     Dates: start: 20001209, end: 20040930
  2. SULFACET-R [Concomitant]
     Route: 065
  3. VIOXX [Suspect]
     Indication: OSTEOARTHRITIS
     Route: 048
     Dates: start: 20001209, end: 20040930
  4. CELEBREX [Concomitant]
     Indication: BACK PAIN
     Route: 065
  5. IBUPROFEN [Concomitant]
     Indication: BACK PAIN
     Route: 065
  6. CIPRO [Concomitant]
     Route: 065
  7. TOBRADEX [Concomitant]
     Route: 065
  8. CEPHALEXIN [Concomitant]
     Route: 065
  9. VI-Q-TUSS [Concomitant]
     Route: 065
  10. VISICOL [Concomitant]
     Route: 065
  11. LEVAQUIN [Concomitant]
     Route: 065
  12. ZITHROMAX [Concomitant]
     Route: 065
  13. METRONIDAZOLE [Concomitant]
     Route: 065
  14. ASPIRIN [Concomitant]
     Indication: PROPHYLAXIS
     Route: 065
     Dates: start: 20030601
  15. ACETAMINOPHEN AND PROPOXYPHENE NAPSYLATE [Concomitant]
     Indication: BACK PAIN
     Route: 065
  16. ACETAMINOPHEN AND HYDROCODONE BITARTRATE [Concomitant]
     Indication: BACK PAIN
     Route: 065
  17. ACETAMINOPHEN AND HYDROCODONE BITARTRATE [Concomitant]
     Route: 065
  18. ACETAMINOPHEN AND HYDROCODONE BITARTRATE [Concomitant]
     Route: 065
  19. TRAMADOL HYDROCHLORIDE [Concomitant]
     Indication: BACK PAIN
     Route: 065
  20. ENDOCET [Concomitant]
     Indication: BACK PAIN
     Route: 065
  21. SKELAXIN [Concomitant]
     Indication: BACK PAIN
     Route: 065
  22. CYCLOBENZAPRINE HYDROCHLORIDE [Concomitant]
     Indication: BACK PAIN
     Route: 065

REACTIONS (22)
  - BLOOD CHOLESTEROL INCREASED [None]
  - BLOOD PRESSURE ABNORMAL [None]
  - BRONCHITIS [None]
  - CARDIAC FAILURE [None]
  - CARDIOMYOPATHY [None]
  - CHEST PAIN [None]
  - CONGESTIVE CARDIOMYOPATHY [None]
  - CORONARY ARTERY DISEASE [None]
  - DEPRESSION [None]
  - DIZZINESS [None]
  - GASTROOESOPHAGEAL REFLUX DISEASE [None]
  - HYPERTENSION [None]
  - IMPLANT SITE HAEMATOMA [None]
  - IMPLANT SITE PAIN [None]
  - MYOCARDIAL INFARCTION [None]
  - OEDEMA PERIPHERAL [None]
  - PACEMAKER COMPLICATION [None]
  - SHOULDER PAIN [None]
  - SYNCOPE [None]
  - VENTRICULAR DYSFUNCTION [None]
  - VENTRICULAR FIBRILLATION [None]
  - VENTRICULAR TACHYCARDIA [None]
